FAERS Safety Report 17711241 (Version 4)
Quarter: 2020Q3

REPORT INFORMATION
  Report Type: Spontaneous
  Country: US (occurrence: US)
  Receive Date: 20200427
  Receipt Date: 20200826
  Transmission Date: 20201102
  Serious: No
  Sender: FDA-Public Use
  Company Number: US-PFIZER INC-2020168141

PATIENT
  Age: 56 Year
  Sex: Female

DRUGS (4)
  1. XELJANZ XR [Suspect]
     Active Substance: TOFACITINIB CITRATE
     Indication: RHEUMATOID ARTHRITIS
     Dosage: 11 MG, DAILY
     Route: 048
     Dates: start: 202003, end: 202003
  2. MOTRIN [Concomitant]
     Active Substance: IBUPROFEN
     Dosage: 500 MG
  3. XELJANZ XR [Suspect]
     Active Substance: TOFACITINIB CITRATE
     Dosage: 11 MG, 1X/DAY
     Route: 048
     Dates: start: 202003, end: 202007
  4. CANNABIDIOL [Concomitant]
     Active Substance: CANNABIDIOL
     Dosage: UNK (GUMMIES)

REACTIONS (7)
  - Musculoskeletal stiffness [Unknown]
  - Intentional product misuse [Unknown]
  - Laboratory test abnormal [Unknown]
  - Product dose omission issue [Unknown]
  - Inflammation [Unknown]
  - Swelling [Unknown]
  - Headache [Recovering/Resolving]

NARRATIVE: CASE EVENT DATE: 2020
